FAERS Safety Report 5017803-5 (Version None)
Quarter: 2006Q2

REPORT INFORMATION
  Report Type: 
  Country: None (occurrence: None)
  Receive Date: 20060530
  Receipt Date: 20050404
  Transmission Date: 20061013
  Serious: Yes (Other)
  Sender: FDA-Public Use
  Company Number: 2005054601

PATIENT
  Age: 47 Year
  Sex: Female
  Weight: 45 kg

DRUGS (3)
  1. LYRICA [Suspect]
     Indication: PROCEDURAL PAIN
     Dosage: 75-150 MG (75 MG,2 IN 1 D), ORAL
     Route: 048
     Dates: start: 20050301
  2. ISOPHANE INSULIN [Concomitant]
  3. OMNIFLORA (ESCHERICHIA COLI, LYOPHILIZED, LACTOBACILLUS ACIDOPHILUS, L [Concomitant]

REACTIONS (2)
  - BLOOD GLUCOSE FLUCTUATION [None]
  - BREAST PAIN [None]
